FAERS Safety Report 25499462 (Version 1)
Quarter: 2025Q3

REPORT INFORMATION
  Report Type: Other
  Country: EU (occurrence: None)
  Receive Date: 20250701
  Receipt Date: 20250701
  Transmission Date: 20251021
  Serious: Yes (Hospitalization)
  Sender: INCYTE
  Company Number: EU-002147023-NVSC2025IT101532

PATIENT
  Age: 81 Year

DRUGS (1)
  1. RUXOLITINIB [Suspect]
     Active Substance: RUXOLITINIB
     Indication: Product used for unknown indication

REACTIONS (5)
  - Acute kidney injury [Recovered/Resolved]
  - Pulmonary embolism [Recovering/Resolving]
  - Acute respiratory failure [Recovered/Resolved with Sequelae]
  - Cardiac failure [Recovered/Resolved]
  - Thrombosis [Recovering/Resolving]
